FAERS Safety Report 24569262 (Version 1)
Quarter: 2024Q4

REPORT INFORMATION
  Report Type: Spontaneous
  Country: US (occurrence: None)
  Receive Date: 20241030
  Receipt Date: 20241030
  Transmission Date: 20250115
  Serious: Yes (Hospitalization)
  Sender: Public
  Company Number: None

PATIENT
  Age: 28 Year
  Sex: Female

DRUGS (10)
  1. TACROLIMUS [Suspect]
     Active Substance: TACROLIMUS
     Indication: Lung transplant
     Dosage: FREQUENCY : TWICE A DAY;?
     Route: 048
     Dates: start: 20211006
  2. DAPSONE 25MG TABLETS [Concomitant]
  3. AMLODIPINE 5MG TABLETS [Concomitant]
  4. AZATHIOPRINE [Concomitant]
     Active Substance: AZATHIOPRINE
  5. PREDNISONE [Concomitant]
     Active Substance: PREDNISONE
  6. FLUOXETINE HYDROCHLORIDE [Concomitant]
     Active Substance: FLUOXETINE HYDROCHLORIDE
  7. PROMETHAZINE 12.5MG TABLETS [Concomitant]
  8. VALACYCLOVIR 1 GM TABLETS [Concomitant]
  9. CREON [Concomitant]
  10. TRIKAFTA [Concomitant]

REACTIONS (1)
  - Tremor [None]

NARRATIVE: CASE EVENT DATE: 20241023
